FAERS Safety Report 8049122-7 (Version None)
Quarter: 2012Q1

REPORT INFORMATION
  Report Type: 
  Country: None (occurrence: None)
  Receive Date: 20120117
  Receipt Date: 20120111
  Transmission Date: 20120608
  Serious: Yes (Other)
  Sender: FDA-Public Use
  Company Number: US-AMGEN-KDL353400

PATIENT
  Age: 77 Year
  Sex: Male

DRUGS (10)
  1. IRON [Concomitant]
     Dosage: UNK UNK, UNK
     Route: 048
  2. HYDROXYZINE [Concomitant]
     Dosage: 10 MG, UNK
     Dates: start: 20080201
  3. METFORMIN HCL [Concomitant]
     Dosage: 500 MG, UNK
     Dates: start: 20080201
  4. CLOBETAZOL [Concomitant]
     Dosage: UNK
     Dates: start: 20080201
  5. DOVONEX [Concomitant]
     Dosage: UNK
     Dates: start: 20080201
  6. ENBREL [Suspect]
     Indication: PSORIASIS
     Dosage: 50 MG, UNK
     Dates: start: 20080514
  7. TERAZOSIN HCL [Concomitant]
     Dosage: 5 MG, UNK
     Dates: start: 20080201
  8. TAZ [Concomitant]
     Dosage: UNK
     Dates: start: 20080201
  9. SIMVASTATIN [Concomitant]
     Dosage: 40 MG, UNK
     Dates: start: 20080201
  10. CLOTRIMAZOLE [Concomitant]
     Dosage: UNK
     Dates: start: 20080201

REACTIONS (3)
  - ANAEMIA [None]
  - COLECTOMY [None]
  - DIZZINESS [None]
